FAERS Safety Report 24292753 (Version 2)
Quarter: 2024Q4

REPORT INFORMATION
  Report Type: Spontaneous
  Country: DE (occurrence: DE)
  Receive Date: 20240906
  Receipt Date: 20241204
  Transmission Date: 20250114
  Serious: Yes (Hospitalization)
  Sender: SANDOZ
  Company Number: DE-ROCHE-10000067915

PATIENT
  Age: 67 Year
  Sex: Male
  Weight: 96 kg

DRUGS (5)
  1. ATEZOLIZUMAB [Suspect]
     Active Substance: ATEZOLIZUMAB
     Indication: Gastrooesophageal cancer
     Dosage: ON SAME DAY, HE RECEIVED LAST DOSE BEFORE ONSET OF AE.
     Route: 042
     Dates: start: 20240816
  2. DOCETAXEL [Suspect]
     Active Substance: DOCETAXEL
     Indication: Gastrooesophageal cancer
     Dosage: ON 16-AUG-2024, LAST DOSE WAS GIVEN PRIOR TO AE.
     Route: 042
     Dates: start: 20240816
  3. FLUOROURACIL [Suspect]
     Active Substance: FLUOROURACIL
     Indication: Gastrooesophageal cancer
     Dosage: ON SAME DAY HE RECEIVED LAST DOSE GIVEN BEFORE ONSET OF AE
     Route: 042
     Dates: start: 20240816
  4. LEUCOVORIN [Suspect]
     Active Substance: LEUCOVORIN\LEUCOVORIN CALCIUM
     Indication: Gastrooesophageal cancer
     Dosage: ON SAME DAY RECEIVED LAST DOSE BEFORE AE.
     Route: 042
     Dates: start: 20240816
  5. OXALIPLATIN [Suspect]
     Active Substance: OXALIPLATIN
     Indication: Gastrooesophageal cancer
     Dosage: ON SAME DAY WAS THE LAST DOSE GIVEN BEFORE AE.
     Route: 042
     Dates: start: 20240816

REACTIONS (1)
  - Abdominal pain [Recovered/Resolved]

NARRATIVE: CASE EVENT DATE: 20240826
